FAERS Safety Report 8494969-6 (Version None)
Quarter: 2012Q3

REPORT INFORMATION
  Report Type: 
  Country: None (occurrence: None)
  Receive Date: 20120709
  Receipt Date: 20120402
  Transmission Date: 20120928
  Serious: Yes (Other)
  Sender: FDA-Public Use
  Company Number: CA-BRISTOL-MYERS SQUIBB COMPANY-16719171

PATIENT
  Age: 83 Year
  Sex: Female

DRUGS (6)
  1. PREDNISONE [Concomitant]
  2. ORENCIA [Suspect]
     Indication: RHEUMATOID ARTHRITIS
     Dosage: INF:9, LAST INF: 28-FEB-12
     Route: 042
     Dates: start: 20110810
  3. GABAPENTIN [Concomitant]
  4. ACTONEL [Concomitant]
  5. WARFARIN SODIUM [Concomitant]
  6. HUMIRA [Concomitant]

REACTIONS (2)
  - FALL [None]
  - IMPAIRED HEALING [None]
